FAERS Safety Report 4739586-6 (Version None)
Quarter: 2005Q3

REPORT INFORMATION
  Report Type: 
  Country: None (occurrence: None)
  Receive Date: 20050810
  Receipt Date: 20050405
  Transmission Date: 20060218
  Serious: No
  Sender: FDA-Public Use
  Company Number: US-GLAXOSMITHKLINE-A0553076A

PATIENT
  Sex: Female

DRUGS (2)
  1. PAXIL [Suspect]
     Indication: PREMENSTRUAL SYNDROME
  2. ANTIDEPRESSANT [Concomitant]
     Indication: PREMENSTRUAL SYNDROME

REACTIONS (2)
  - LETHARGY [None]
  - VISION BLURRED [None]
